APPROVED DRUG PRODUCT: FLUDEOXYGLUCOSE F18
Active Ingredient: FLUDEOXYGLUCOSE F-18
Strength: 10-100mCi/ML
Dosage Form/Route: INJECTABLE;INTRAVENOUS
Application: A203771 | Product #001 | TE Code: AP
Applicant: QUEEN HAMAMATSU PET IMAGING CENTER
Approved: Aug 31, 2015 | RLD: No | RS: Yes | Type: RX